FAERS Safety Report 9508058 (Version 1)
Quarter: 2013Q1

REPORT INFORMATION
  Report Type: Spontaneous
  Country: US (occurrence: None)
  Receive Date: 20130305
  Receipt Date: 20130305
  Transmission Date: 20140127
  Serious: Yes (Other)
  Sender: FDA-Public Use
  Company Number: 163-21880-12032880

PATIENT
  Age: 89 Year
  Sex: Female
  Weight: 64.41 kg

DRUGS (10)
  1. REVLIMID (LENALIDOMIDE) (CAPSULES) [Suspect]
     Indication: PLASMA CELL MYELOMA
     Dosage: 21 IN 28 D
     Route: 048
     Dates: start: 20101004, end: 20110903
  2. TRIAMTEREN /HCTZ(-DYAZIDE) [Concomitant]
  3. NEXIUM [Concomitant]
  4. CELEXA (CITALOPRAM HYDROBROMIDE) [Concomitant]
  5. DEXAMETHASONE (DEXAMETHASONE) [Suspect]
  6. POTASSIUM (POTASSIUM) [Concomitant]
  7. VITAMINS [Concomitant]
  8. VITAMIN D (ERGOCALCIFEROL) [Concomitant]
  9. LOVENOX (HEPARIN-FRACTION, SODIUM SALT) [Concomitant]
  10. ACETAMINOPHEN\HYDROCODONE BITARTRATE [Concomitant]

REACTIONS (2)
  - Contusion [None]
  - Platelet count decreased [None]
